FAERS Safety Report 8462141-1 (Version None)
Quarter: 2012Q2

REPORT INFORMATION
  Report Type: 
  Country: None (occurrence: None)
  Receive Date: 20120625
  Receipt Date: 20120611
  Transmission Date: 20120825
  Serious: Yes (Other)
  Sender: FDA-Public Use
  Company Number: TR-AMGEN-TURSP2012015166

PATIENT
  Age: 47 Year
  Sex: Male

DRUGS (2)
  1. ENBREL [Suspect]
     Indication: ANKYLOSING SPONDYLITIS
     Dosage: 50 MG, QWK
     Route: 058
     Dates: start: 20090913
  2. ENBREL [Suspect]
     Dosage: 50 MG, UNK

REACTIONS (7)
  - RASH [None]
  - CARDIOMEGALY [None]
  - HYPERHIDROSIS [None]
  - DRY MOUTH [None]
  - SWOLLEN TONGUE [None]
  - LIP DRY [None]
  - DYSPNOEA [None]
